FAERS Safety Report 12451009 (Version 1)
Quarter: 2016Q2

REPORT INFORMATION
  Report Type: Spontaneous
  Country: ES (occurrence: ES)
  Receive Date: 20160609
  Receipt Date: 20160609
  Transmission Date: 20160815
  Serious: Yes (Death, Hospitalization, Other)
  Sender: FDA-Public Use
  Company Number: ES-ASTELLAS-2016US021886

PATIENT
  Age: 27 Year
  Sex: Male

DRUGS (4)
  1. PREDNISONE. [Concomitant]
     Active Substance: PREDNISONE
     Indication: LUNG TRANSPLANT
     Dosage: UNK, UNKNOWN FREQ.
     Route: 065
  2. TACROLIMUS. [Suspect]
     Active Substance: TACROLIMUS
     Indication: LUNG TRANSPLANT
     Dosage: UNK, UNKNOWN FREQ.
     Route: 065
  3. VORICONAZOLE. [Concomitant]
     Active Substance: VORICONAZOLE
     Indication: PROPHYLAXIS
     Route: 042
  4. AMPHOTERICIN B. [Concomitant]
     Active Substance: AMPHOTERICIN B
     Indication: PROPHYLAXIS
     Route: 042

REACTIONS (13)
  - Multiple organ dysfunction syndrome [Fatal]
  - Haemothorax [Unknown]
  - Polyneuropathy [Unknown]
  - Pulmonary artery thrombosis [Unknown]
  - Scedosporium infection [Unknown]
  - Off label use [Unknown]
  - Respiratory failure [Unknown]
  - Cardiac valve vegetation [Unknown]
  - Systemic mycosis [Unknown]
  - Renal failure [Unknown]
  - Hepatic enzyme increased [Unknown]
  - Condition aggravated [Unknown]
  - Acute kidney injury [Unknown]
